FAERS Safety Report 9138624 (Version 3)
Quarter: 2013Q2

REPORT INFORMATION
  Report Type: Spontaneous
  Country: VE (occurrence: VE)
  Receive Date: 20130305
  Receipt Date: 20130530
  Transmission Date: 20140414
  Serious: Yes (Death, Other)
  Sender: FDA-Public Use
  Company Number: VE-ELI_LILLY_AND_COMPANY-VE201302008155

PATIENT
  Sex: Female

DRUGS (1)
  1. HUMALOG LISPRO [Suspect]

REACTIONS (1)
  - Myocardial infarction [Fatal]
